FAERS Safety Report 18017312 (Version 1)
Quarter: 2020Q3

REPORT INFORMATION
  Report Type: Spontaneous
  Country: US (occurrence: US)
  Receive Date: 20200714
  Receipt Date: 20200714
  Transmission Date: 20201103
  Serious: No
  Sender: FDA-Public Use
  Company Number: US-AMGEN-USASP2020100641

PATIENT
  Age: 61 Year
  Sex: Male

DRUGS (2)
  1. OTEZLA [Suspect]
     Active Substance: APREMILAST
     Dosage: UNK UNK, QID (INCREASED HIS DOSE TO FOUR TIMES DAY)
     Route: 065
     Dates: start: 2020
  2. OTEZLA [Suspect]
     Active Substance: APREMILAST
     Indication: PSORIASIS
     Dosage: UNK UNK, BID (RECOMMENDED AS PRESCRIBED DOSE TWICE A DAY)
     Route: 065
     Dates: start: 2020, end: 2020

REACTIONS (5)
  - Pruritus [Unknown]
  - Peripheral swelling [Not Recovered/Not Resolved]
  - Intentional product misuse [Unknown]
  - Joint swelling [Not Recovered/Not Resolved]
  - Arthralgia [Not Recovered/Not Resolved]

NARRATIVE: CASE EVENT DATE: 2020
